FAERS Safety Report 9759721 (Version 1)
Quarter: 2013Q4

REPORT INFORMATION
  Report Type: Spontaneous
  Country: US (occurrence: US)
  Receive Date: 20131216
  Receipt Date: 20131216
  Transmission Date: 20140711
  Serious: No
  Sender: FDA-Public Use
  Company Number: US-GILEAD-2010-0029031

PATIENT
  Age: 69 Year
  Sex: 0
  Weight: 55.34 kg

DRUGS (11)
  1. LETAIRIS [Suspect]
     Indication: PULMONARY ARTERIAL HYPERTENSION
     Route: 048
     Dates: start: 20100407
  2. COZAAR [Concomitant]
  3. LASIX [Concomitant]
  4. TYLENOL [Concomitant]
  5. CELEXA [Concomitant]
  6. TUMS [Concomitant]
  7. WARFARIN [Concomitant]
  8. STOOL SOFTENER [Concomitant]
  9. REVATIO [Concomitant]
  10. DIGOXIN [Concomitant]
  11. A-Z MULTIVITAMIN [Concomitant]

REACTIONS (4)
  - Wheezing [Unknown]
  - Weight increased [Unknown]
  - Local swelling [Unknown]
  - Fluid retention [Unknown]
